FAERS Safety Report 13299051 (Version 1)
Quarter: 2017Q1

REPORT INFORMATION
  Report Type: Spontaneous
  Country: PL (occurrence: PL)
  Receive Date: 20170306
  Receipt Date: 20170306
  Transmission Date: 20170428
  Serious: Yes (Hospitalization, Other)
  Sender: FDA-Public Use
  Company Number: PHHY2017PL028292

PATIENT
  Age: 74 Year
  Sex: Male

DRUGS (1)
  1. GLIVEC [Suspect]
     Active Substance: IMATINIB MESYLATE
     Indication: CHRONIC MYELOID LEUKAEMIA
     Dosage: UNK
     Route: 065
     Dates: start: 20070711, end: 20140910

REACTIONS (15)
  - Bundle branch block bilateral [Unknown]
  - Hyperhidrosis [Unknown]
  - Acute myocardial infarction [Unknown]
  - Diabetes mellitus [Unknown]
  - Obesity [Unknown]
  - Loss of consciousness [Unknown]
  - Wound [Unknown]
  - Myocardial infarction [Unknown]
  - Cardiac failure [Unknown]
  - Hypertension [Unknown]
  - Skin abrasion [Unknown]
  - Angina pectoris [Not Recovered/Not Resolved]
  - Mitral valve incompetence [Unknown]
  - Coronary artery stenosis [Unknown]
  - Arthralgia [Unknown]

NARRATIVE: CASE EVENT DATE: 20080319
